FAERS Safety Report 14426171 (Version 1)
Quarter: 2018Q1

REPORT INFORMATION
  Report Type: Spontaneous
  Country: SG (occurrence: SG)
  Receive Date: 20180122
  Receipt Date: 20180122
  Transmission Date: 20180509
  Serious: Yes (Other)
  Sender: FDA-Public Use
  Company Number: None

PATIENT
  Sex: Male

DRUGS (3)
  1. DERMASONE (BETAMETHASONE VALERATE) [Suspect]
     Active Substance: BETAMETHASONE VALERATE
     Indication: ECZEMA
     Route: 061
     Dates: start: 20130701, end: 20170501
  2. SKIN FOOD AM SKIN FOOD PM [Concomitant]
  3. DHACORT CREAM [Suspect]
     Active Substance: HYDROCORTISONE ACETATE
     Indication: ECZEMA
     Route: 061
     Dates: start: 20130701, end: 20170501

REACTIONS (1)
  - Eczema [None]

NARRATIVE: CASE EVENT DATE: 20170501
